FAERS Safety Report 5676580-5 (Version None)
Quarter: 2008Q1

REPORT INFORMATION
  Report Type: 
  Country: None (occurrence: None)
  Receive Date: 20080318
  Receipt Date: 20080304
  Transmission Date: 20080703
  Serious: Yes (Hospitalization)
  Sender: FDA-Public Use
  Company Number: PAR_02133_2008

PATIENT
  Age: 31 Year
  Sex: Male
  Weight: 59 kg

DRUGS (1)
  1. CAPTOPRIL [Suspect]
     Indication: DRUG USE FOR UNKNOWN INDICATION
     Dosage: 300 MG 1X NOT THE PRESCRIBED AMOUNT, ORAL)
     Route: 048
     Dates: start: 20080113

REACTIONS (3)
  - HYPERTENSION [None]
  - OVERDOSE [None]
  - TREMOR [None]
